FAERS Safety Report 8055781-5 (Version None)
Quarter: 2011Q4

REPORT INFORMATION
  Report Type: 
  Country: None (occurrence: None)
  Receive Date: 20111215
  Receipt Date: 20110412
  Transmission Date: 20120403
  Serious: Yes (Hospitalization)
  Sender: FDA-Public Use
  Company Number: 1000020086

PATIENT
  Sex: Female

DRUGS (1)
  1. NAMENDA [Suspect]
     Dosage: 20 MG (20 MG,1 IN 1 D),ORAL ; 10 MG (5 MG,2 IN 1 D),ORAL

REACTIONS (1)
  - HYPONATRAEMIA [None]
